FAERS Safety Report 18099561 (Version 3)
Quarter: 2021Q3

REPORT INFORMATION
  Report Type: Report from Study
  Country: US (occurrence: US)
  Receive Date: 20200731
  Receipt Date: 20210703
  Transmission Date: 20211014
  Serious: No
  Sender: FDA-Public Use
  Company Number: NVSC2020US209704

PATIENT
  Sex: Female

DRUGS (1)
  1. ENTRESTO [Suspect]
     Active Substance: SACUBITRIL\VALSARTAN
     Indication: PRODUCT USED FOR UNKNOWN INDICATION
     Dosage: 200 UNK, BID ,(97/103MG)
     Route: 065
     Dates: start: 20200107, end: 20200116

REACTIONS (3)
  - Product prescribing error [Unknown]
  - Dysphonia [Unknown]
  - Wrong technique in product usage process [Unknown]
